FAERS Safety Report 24896186 (Version 1)
Quarter: 2025Q1

REPORT INFORMATION
  Report Type: Spontaneous
  Country: CA (occurrence: CA)
  Receive Date: 20250128
  Receipt Date: 20250128
  Transmission Date: 20250408
  Serious: Yes (Other)
  Sender: FRESENIUS KABI
  Company Number: CA-FreseniusKabi-FK202501196

PATIENT

DRUGS (14)
  1. MAGNESIUM SULFATE [Suspect]
     Active Substance: MAGNESIUM SULFATE
     Indication: Nervous system disorder prophylaxis
     Route: 064
  2. MAGNESIUM SULFATE [Suspect]
     Active Substance: MAGNESIUM SULFATE
     Indication: Foetal therapeutic procedure
     Route: 065
  3. AMPICILLIN [Suspect]
     Active Substance: AMPICILLIN
     Indication: Bacterial infection
     Route: 064
  4. AMPICILLIN [Suspect]
     Active Substance: AMPICILLIN
     Indication: Antibiotic therapy
     Route: 064
  5. ATOSIBAN [Suspect]
     Active Substance: ATOSIBAN
     Indication: Product used for unknown indication
  6. BETAMETHASONE [Suspect]
     Active Substance: BETAMETHASONE
     Indication: Product used for unknown indication
  7. GENTAMICIN [Suspect]
     Active Substance: GENTAMICIN
     Indication: Product used for unknown indication
  8. GENTAMICIN SULFATE [Suspect]
     Active Substance: GENTAMICIN SULFATE
     Indication: Bacterial infection
  9. GENTAMICIN SULFATE [Suspect]
     Active Substance: GENTAMICIN SULFATE
     Indication: Antibiotic therapy
     Dosage: ROA: TRANSPLACENTAL
  10. DEXTROSE [Suspect]
     Active Substance: DEXTROSE MONOHYDRATE
     Indication: Product used for unknown indication
  11. AZITHROMYCIN ANHYDROUS [Suspect]
     Active Substance: AZITHROMYCIN ANHYDROUS
     Indication: Bacterial infection
     Dosage: ROA: TRANSPLACENTAL?DOSAGE FORM: NOT SPECIFIED
  12. AZITHROMYCIN ANHYDROUS [Suspect]
     Active Substance: AZITHROMYCIN ANHYDROUS
     Indication: Antibiotic therapy
  13. AZITHROMYCIN ANHYDROUS [Suspect]
     Active Substance: AZITHROMYCIN ANHYDROUS
     Indication: Bacterial infection
     Dosage: ROA: TRANSPLACENTAL?DOSAGE FORM: NOT SPECIFIED
  14. AZITHROMYCIN ANHYDROUS [Suspect]
     Active Substance: AZITHROMYCIN ANHYDROUS
     Indication: Antibiotic therapy

REACTIONS (2)
  - Maternal exposure during pregnancy [Unknown]
  - Premature baby [Unknown]
